FAERS Safety Report 8187013-1 (Version None)
Quarter: 2012Q1

REPORT INFORMATION
  Report Type: 
  Country: None (occurrence: None)
  Receive Date: 20120306
  Receipt Date: 20120229
  Transmission Date: 20120608
  Serious: Yes (Other)
  Sender: FDA-Public Use
  Company Number: US-PFIZER INC-2012055199

PATIENT
  Sex: Male

DRUGS (5)
  1. TRAZODONE [Concomitant]
     Dosage: UNK
  2. ENALAPRIL [Concomitant]
     Dosage: UNK
  3. METFORMIN [Concomitant]
     Dosage: UNK
  4. LYRICA [Suspect]
     Dosage: 100 MG, 2X/DAY
  5. PRAVASTATIN [Concomitant]
     Dosage: UNK

REACTIONS (2)
  - DIABETES MELLITUS [None]
  - NEUROPATHY PERIPHERAL [None]
